FAERS Safety Report 23518219 (Version 1)
Quarter: 2024Q1

REPORT INFORMATION
  Report Type: Spontaneous
  Country: US (occurrence: US)
  Receive Date: 20240213
  Receipt Date: 20240213
  Transmission Date: 20240410
  Serious: No
  Sender: FDA-Public Use
  Company Number: US-BAXTER-2024BAX011600

PATIENT
  Sex: Male

DRUGS (6)
  1. CYCLOPHOSPHAMIDE [Suspect]
     Active Substance: CYCLOPHOSPHAMIDE
     Indication: Prostate cancer
     Dosage: UNK AS PART OF AC T REGIMEN
     Route: 065
  2. DOXORUBICIN [Suspect]
     Active Substance: DOXORUBICIN
     Indication: Prostate cancer
     Dosage: UNK, AS PART OF AC T REGIMEN
     Route: 065
  3. PACLITAXEL [Suspect]
     Active Substance: PACLITAXEL
     Indication: Prostate cancer
     Dosage: UNK,  AS PART OF AC T REGIMEN
     Route: 065
  4. XTANDI [Suspect]
     Active Substance: ENZALUTAMIDE
     Indication: Prostate cancer
     Dosage: UNK
     Route: 065
  5. TALAZOPARIB [Suspect]
     Active Substance: TALAZOPARIB
     Indication: Prostate cancer
     Dosage: 0.5 MG, TAKE 1 CAPSULE DAILY, QUANTITY : 30 CAPSULE
     Route: 048
  6. DOCETAXEL [Suspect]
     Active Substance: DOCETAXEL\DOCETAXEL ANHYDROUS
     Indication: Prostate cancer
     Dosage: UNK (START DATE - DEC-2022)
     Route: 065

REACTIONS (2)
  - Prostatic specific antigen increased [Unknown]
  - Drug ineffective [Unknown]

NARRATIVE: CASE EVENT DATE: 20230801
